FAERS Safety Report 7319622-3 (Version None)
Quarter: 2011Q1

REPORT INFORMATION
  Report Type: 
  Country: None (occurrence: None)
  Receive Date: 20110228
  Receipt Date: 20100719
  Transmission Date: 20110831
  Serious: No
  Sender: FDA-Public Use
  Company Number: A0865737A

PATIENT
  Age: 41 Year
  Sex: Male

DRUGS (3)
  1. AMBIEN CR [Concomitant]
  2. XANAX [Concomitant]
  3. LAMICTAL [Suspect]
     Route: 048
     Dates: start: 20100318

REACTIONS (2)
  - BREAST MASS [None]
  - BREAST PAIN [None]
